FAERS Safety Report 24379185 (Version 1)
Quarter: 2024Q3

REPORT INFORMATION
  Report Type: Spontaneous
  Country: US (occurrence: None)
  Receive Date: 20240929
  Receipt Date: 20240929
  Transmission Date: 20241017
  Serious: Yes (Life-Threatening, Hospitalization, Disabling, Other)
  Sender: Public
  Company Number: None

PATIENT
  Age: 10 Year
  Sex: Female
  Weight: 29.75 kg

DRUGS (2)
  1. OXBRYTA [Suspect]
     Active Substance: VOXELOTOR
     Indication: Sickle cell anaemia
     Dosage: 3 TABLETS ORAL
     Route: 048
     Dates: start: 20240405, end: 20240507
  2. Hydroxyurea Folic Acid [Concomitant]

REACTIONS (7)
  - Surgery [None]
  - Headache [None]
  - Pyrexia [None]
  - Lethargy [None]
  - Chest pain [None]
  - Splenectomy [None]
  - Hypersplenism [None]

NARRATIVE: CASE EVENT DATE: 20240405
